FAERS Safety Report 24182709 (Version 1)
Quarter: 2024Q3

REPORT INFORMATION
  Report Type: Spontaneous
  Country: KR (occurrence: KR)
  Receive Date: 20240807
  Receipt Date: 20240807
  Transmission Date: 20241017
  Serious: Yes (Death, Other)
  Sender: ASTELLAS
  Company Number: KR-ASTELLAS-2024US021737

PATIENT

DRUGS (1)
  1. PADCEV [Suspect]
     Active Substance: ENFORTUMAB VEDOTIN-EJFV
     Indication: Transitional cell carcinoma metastatic
     Dosage: 30MG 2 VIAL AND 20MG 1 VIAL, UNKNOWN FREQ.
     Route: 065
     Dates: start: 20240628

REACTIONS (2)
  - Cardiac disorder [Fatal]
  - Myocardial infarction [Fatal]
